FAERS Safety Report 7210351-3 (Version None)
Quarter: 2011Q1

REPORT INFORMATION
  Report Type: 
  Country: None (occurrence: None)
  Receive Date: 20110105
  Receipt Date: 20101227
  Transmission Date: 20110831
  Serious: Yes (Hospitalization)
  Sender: FDA-Public Use
  Company Number: FR-SANOFI-AVENTIS-2010SA078099

PATIENT
  Age: 46 Year
  Sex: Male

DRUGS (23)
  1. TAXOL [Suspect]
     Route: 042
     Dates: start: 20100905
  2. PERFALGAN [Concomitant]
     Dosage: DOSE:10 MILLIGRAM(S)/MILLILITRE
     Route: 042
     Dates: start: 20101101, end: 20101106
  3. CIPROFLOXACIN HYDROCHLORIDE [Concomitant]
     Route: 048
     Dates: start: 20101101
  4. SPASFON [Concomitant]
  5. HUMALOG [Concomitant]
  6. LOVENOX [Suspect]
     Route: 051
     Dates: start: 20101101, end: 20101107
  7. PROFENID [Suspect]
     Route: 048
     Dates: start: 20101023, end: 20101025
  8. PROFENID [Concomitant]
     Route: 042
     Dates: start: 20101105, end: 20101105
  9. SOLUDACTONE [Concomitant]
  10. CALCIPARINE [Concomitant]
  11. OXYCODONE HCL [Suspect]
     Dosage: 15 MG EVERY HOUR
     Route: 048
     Dates: start: 20101023
  12. FARMORUBICINE [Suspect]
     Route: 042
     Dates: start: 20100905
  13. ACUPAN [Concomitant]
     Dosage: 6 TIMES DAILY
     Route: 042
     Dates: start: 20101106
  14. SOLUPRED [Suspect]
     Route: 048
     Dates: start: 20101024
  15. FENTANYL CITRATE [Concomitant]
     Route: 002
     Dates: start: 20101101
  16. LYRICA [Suspect]
     Route: 048
     Dates: start: 20101023
  17. AMLOR [Concomitant]
     Route: 048
  18. ATARAX [Suspect]
     Route: 042
     Dates: start: 20101025, end: 20101026
  19. MOPRAL [Suspect]
     Route: 048
     Dates: start: 20101023, end: 20101025
  20. STILNOX [Concomitant]
     Route: 048
  21. FORLAX [Concomitant]
  22. BRISTOPEN [Concomitant]
     Dates: start: 20101101
  23. LASIX [Concomitant]
     Route: 042
     Dates: start: 20101105, end: 20101105

REACTIONS (6)
  - RENAL FAILURE ACUTE [None]
  - HYPERTENSION [None]
  - NEPHROTIC SYNDROME [None]
  - WEIGHT INCREASED [None]
  - PROTEINURIA [None]
  - HYPOALBUMINAEMIA [None]
